FAERS Safety Report 9116040 (Version 2)
Quarter: 2014Q1

REPORT INFORMATION
  Report Type: Report from Study
  Country: BR (occurrence: BR)
  Receive Date: 20130225
  Receipt Date: 20140108
  Transmission Date: 20141002
  Serious: Yes (Other)
  Sender: FDA-Public Use
  Company Number: PHHY2012BR076548

PATIENT
  Sex: Female

DRUGS (8)
  1. ACLASTA [Suspect]
     Indication: OSTEOPOROSIS
     Dosage: 5MG/100ML, UNK
     Route: 042
     Dates: start: 20120830
  2. SYNTHROID [Concomitant]
     Dosage: 1 DF, QD
     Route: 048
  3. HYDROCHLOROTHIAZIDE [Concomitant]
     Indication: SWELLING
     Dosage: 1 DF, QD
     Route: 048
  4. ROSUVASTATIN [Concomitant]
     Indication: BLOOD CHOLESTEROL INCREASED
     Dosage: 1 DF, QD
     Route: 048
  5. CENTRUM [Concomitant]
     Indication: GASTROINTESTINAL DISORDER
     Dosage: 1 DF, QD
     Route: 048
     Dates: start: 2002
  6. MODURETIC [Concomitant]
     Dosage: UNK UKN, UNK
     Dates: start: 2011
  7. FLUOXETINE [Concomitant]
     Dosage: UNK UKN, UNK
     Dates: start: 2013
  8. TOPIRAMATE [Concomitant]
     Dosage: UNK UKN, UNK
     Dates: start: 2013

REACTIONS (8)
  - Syncope [Recovered/Resolved]
  - Retching [Recovered/Resolved]
  - Feeling cold [Recovered/Resolved]
  - Nervous system disorder [Unknown]
  - Dysarthria [Unknown]
  - Pyrexia [Recovered/Resolved]
  - Pain [Recovered/Resolved]
  - Asthenia [Recovered/Resolved]
